FAERS Safety Report 4774472-7 (Version None)
Quarter: 2005Q3

REPORT INFORMATION
  Report Type: 
  Country: None (occurrence: None)
  Receive Date: 20050919
  Receipt Date: 20050919
  Transmission Date: 20060218
  Serious: Yes (Other)
  Sender: FDA-Public Use
  Company Number: None

PATIENT
  Age: 62 Year
  Sex: Female
  Weight: 68.9467 kg

DRUGS (4)
  1. TAXOTERE [Suspect]
     Indication: NON-SMALL CELL LUNG CANCER
     Dosage: 65 MG ONCE WEEKLY FOR 11 CYCLES
     Dates: start: 20050427, end: 20050908
  2. DEXAMETHASONE [Concomitant]
  3. DIPHENHYDRAMINE HCL [Concomitant]
  4. DEXAMETHASONE [Concomitant]

REACTIONS (3)
  - EXTRAVASATION [None]
  - OPEN WOUND [None]
  - RASH [None]
